FAERS Safety Report 10451048 (Version 3)
Quarter: 2014Q4

REPORT INFORMATION
  Report Type: Report from Study
  Country: GR (occurrence: GR)
  Receive Date: 20140912
  Receipt Date: 20141119
  Transmission Date: 20150528
  Serious: Yes (Hospitalization, Other)
  Sender: FDA-Public Use
  Company Number: GR-ABBVIE-10P-066-0636378-02

PATIENT
  Age: 22 Year
  Sex: Male
  Weight: 45 kg

DRUGS (2)
  1. HUMIRA (COMMERCIAL) [Concomitant]
     Indication: CROHN^S DISEASE
     Route: 058
     Dates: start: 20071107
  2. HUMIRA [Suspect]
     Active Substance: ADALIMUMAB
     Indication: CROHN^S DISEASE
     Route: 058
     Dates: start: 20071101, end: 20091220

REACTIONS (1)
  - Testis cancer [Recovered/Resolved]

NARRATIVE: CASE EVENT DATE: 20100130
